FAERS Safety Report 9954969 (Version 2)
Quarter: 2014Q1

REPORT INFORMATION
  Report Type: Spontaneous
  Country: PR (occurrence: PR)
  Receive Date: 20140304
  Receipt Date: 20140304
  Transmission Date: 20141002
  Serious: No
  Sender: FDA-Public Use
  Company Number: PR-ABBVIE-13P-131-1055381-00

PATIENT
  Age: 61 Year
  Sex: Male
  Weight: 54.48 kg

DRUGS (6)
  1. HUMIRA [Suspect]
     Indication: CROHN^S DISEASE
     Route: 058
  2. EXPECTORANTE SYRUP [Concomitant]
     Indication: NASOPHARYNGITIS
     Dosage: TABLESPOON
     Route: 058
     Dates: start: 20130217, end: 20130223
  3. LISINOPRIL [Concomitant]
     Indication: HYPERTENSION
  4. IMODIUM [Concomitant]
     Indication: GASTROINTESTINAL DISORDER
  5. B12 [Concomitant]
     Indication: ROUTINE HEALTH MAINTENANCE
     Route: 048
  6. DEMEROL [Concomitant]
     Indication: GASTROINTESTINAL DISORDER
     Route: 048

REACTIONS (1)
  - Nasopharyngitis [Recovered/Resolved]
